FAERS Safety Report 10984715 (Version 4)
Quarter: 2015Q2

REPORT INFORMATION
  Report Type: Spontaneous
  Country: US (occurrence: US)
  Receive Date: 20150403
  Receipt Date: 20150525
  Transmission Date: 20150821
  Serious: No
  Sender: FDA-Public Use
  Company Number: US-JNJFOC-20131004944

PATIENT
  Sex: Female
  Weight: 76.66 kg

DRUGS (2)
  1. IMODIUM MULTI-SYMPTOM RELIEF [Suspect]
     Active Substance: DIMETHICONE\LOPERAMIDE HYDROCHLORIDE
     Route: 048
  2. IMODIUM MULTI-SYMPTOM RELIEF [Suspect]
     Active Substance: DIMETHICONE\LOPERAMIDE HYDROCHLORIDE
     Indication: DIARRHOEA INFECTIOUS
     Dosage: 2 PACKAGES, 1 DOSE AT A TIME;UP TO 4 CAPLETS A DAY
     Route: 048
     Dates: start: 2013, end: 2013

REACTIONS (5)
  - Retching [Recovered/Resolved]
  - Choking [Recovered/Resolved]
  - Product difficult to swallow [Unknown]
  - Product formulation issue [Unknown]
  - Product difficult to swallow [Recovered/Resolved]

NARRATIVE: CASE EVENT DATE: 2013
